FAERS Safety Report 6401301-8 (Version None)
Quarter: 2009Q4

REPORT INFORMATION
  Report Type: 
  Country: None (occurrence: None)
  Receive Date: 20091015
  Receipt Date: 20091002
  Transmission Date: 20100525
  Serious: Yes (Other)
  Sender: FDA-Public Use
  Company Number: PHHY2009BR32967

PATIENT
  Age: 58 Year
  Sex: Female

DRUGS (3)
  1. ZELMAC [Suspect]
     Indication: CONSTIPATION
     Dosage: 2 TABLET DAILY
     Route: 048
  2. ESTRADERM [Concomitant]
     Indication: HORMONE REPLACEMENT THERAPY
     Dosage: 50 MCG, 1 PATCH EVERY THREE DAYS
     Dates: start: 20090301
  3. ENABLEX [Concomitant]
     Dosage: 7.5 MG, QD
     Route: 048
     Dates: start: 20090301

REACTIONS (1)
  - HYSTERECTOMY [None]
